FAERS Safety Report 4265957-0 (Version None)
Quarter: 2004Q1

REPORT INFORMATION
  Report Type: 
  Country: None (occurrence: None)
  Receive Date: 20040106
  Receipt Date: 20031222
  Transmission Date: 20041129
  Serious: Yes (Death, Life-Threatening)
  Sender: FDA-Public Use
  Company Number: 2003036201

PATIENT
  Age: 65 Year
  Sex: Female
  Weight: 59 kg

DRUGS (15)
  1. DIFLUCAN [Suspect]
     Indication: OESOPHAGEAL CANDIDIASIS
     Dosage: 200 MG, INTRAVENOUS
     Route: 042
     Dates: start: 20030606, end: 20030606
  2. LEVOFLOXACIN [Concomitant]
  3. AMLODIPINE BESYLATE [Concomitant]
  4. ISOSORBIDE MONONITRATE [Concomitant]
  5. SALUTEC (HYDROCHLOROTHIAZIDE, RAMIPRIL) [Concomitant]
  6. RAMIPRIL [Concomitant]
  7. BISOPRLOL FUMARATE (BISOPROLOL FUMARATE) [Concomitant]
  8. FENTANYL [Concomitant]
  9. LEVOTHYROXINE SODIUM [Concomitant]
  10. SODIUM PICOSULFATE (SODIUM PICOSULFATE) [Concomitant]
  11. AMINOSALICYLIC ACID (AMINOSALICYLIC ACID) [Concomitant]
  12. ESOEMPRAZOLE (ESOMEPRAZOLE) [Concomitant]
  13. DIMETICONE (DIMETICONE) [Concomitant]
  14. VALORON N (NALOXONE HYDROCHLORIDE, TILIDINE HYDROCHLORIDE) [Concomitant]
  15. DIMENHYDRINATE (DIMENHYDRINATE) [Concomitant]

REACTIONS (11)
  - CARDIAC FAILURE [None]
  - COLITIS ISCHAEMIC [None]
  - DRUG TOXICITY [None]
  - ENTEROCOLITIS [None]
  - HEPATIC FAILURE [None]
  - HEPATIC NECROSIS [None]
  - HEPATOCELLULAR DAMAGE [None]
  - LARGE INTESTINAL ULCER [None]
  - PROTHROMBIN TIME PROLONGED [None]
  - SHOCK [None]
  - VASCULITIS [None]
